FAERS Safety Report 18863897 (Version 7)
Quarter: 2022Q1

REPORT INFORMATION
  Report Type: Report from Study
  Country: US (occurrence: US)
  Receive Date: 20210209
  Receipt Date: 20220307
  Transmission Date: 20220423
  Serious: Yes (Hospitalization, Other)
  Sender: FDA-Public Use
  Company Number: US-TAKEDA-US202031569

PATIENT
  Age: 46 Year
  Sex: Female

DRUGS (3)
  1. HUMAN IMMUNOGLOBULIN G [Suspect]
     Active Substance: HUMAN IMMUNOGLOBULIN G
     Indication: Primary immunodeficiency syndrome
     Dosage: UNK
     Route: 058
  2. HYQVIA [Suspect]
     Active Substance: HUMAN IMMUNOGLOBULIN G\HYALURONIDASE RECOMBINANT HUMAN
     Indication: Primary immunodeficiency syndrome
     Dosage: UNK
     Route: 065
  3. HYQVIA [Suspect]
     Active Substance: HUMAN IMMUNOGLOBULIN G\HYALURONIDASE RECOMBINANT HUMAN
     Indication: Immunodeficiency common variable

REACTIONS (12)
  - Pneumonia [Recovering/Resolving]
  - Anaphylactic reaction [Recovering/Resolving]
  - COVID-19 [Unknown]
  - Renal failure [Unknown]
  - Sleep apnoea syndrome [Unknown]
  - Fibromyalgia [Unknown]
  - Weight increased [Unknown]
  - Gastrointestinal disorder [Recovered/Resolved]
  - Upper respiratory tract infection [Unknown]
  - Skin infection [Unknown]
  - Fatigue [Unknown]
  - Pyrexia [Recovered/Resolved]

NARRATIVE: CASE EVENT DATE: 20200501
